FAERS Safety Report 13663257 (Version 1)
Quarter: 2017Q2

REPORT INFORMATION
  Report Type: Spontaneous
  Country: US (occurrence: US)
  Receive Date: 20170619
  Receipt Date: 20170619
  Transmission Date: 20170830
  Serious: No
  Sender: FDA-Public Use
  Company Number: US-TEVA-766880ACC

PATIENT
  Age: 72 Year
  Sex: Female
  Weight: 79.36 kg

DRUGS (2)
  1. MUCUS ER [Suspect]
     Active Substance: GUAIFENESIN
     Dosage: 1/2 TABLET, SINGLE
     Route: 048
     Dates: start: 201702, end: 201702
  2. MUCUS ER [Suspect]
     Active Substance: GUAIFENESIN
     Indication: RESPIRATORY TRACT CONGESTION
     Dosage: ONE TABLET, SINGLE
     Route: 048
     Dates: start: 201702, end: 201702

REACTIONS (4)
  - Oropharyngeal pain [Recovered/Resolved]
  - Incorrect dose administered [Unknown]
  - Foreign body [Unknown]
  - Wrong technique in product usage process [Unknown]

NARRATIVE: CASE EVENT DATE: 201702
